FAERS Safety Report 22246238 (Version 1)
Quarter: 2023Q2

REPORT INFORMATION
  Report Type: Spontaneous
  Country: US (occurrence: US)
  Receive Date: 20230424
  Receipt Date: 20230424
  Transmission Date: 20230721
  Serious: Yes (Hospitalization)
  Sender: FDA-Public Use
  Company Number: US-PFIZER INC-202300165339

PATIENT
  Age: 83 Year
  Sex: Female

DRUGS (1)
  1. IBRANCE [Suspect]
     Active Substance: PALBOCICLIB
     Dosage: 100MG, CYCLIC (TAKE 1 TABLET DAILY FOR 21 DAYS, THEN 7 DAYS OFF)
     Dates: start: 20220401

REACTIONS (5)
  - Asthenia [Unknown]
  - Hypoaesthesia [Unknown]
  - Fatigue [Unknown]
  - White blood cell count decreased [Unknown]
  - Motor dysfunction [Unknown]
